FAERS Safety Report 8588518-1 (Version None)
Quarter: 2012Q3

REPORT INFORMATION
  Report Type: 
  Country: None (occurrence: None)
  Receive Date: 20120813
  Receipt Date: 20120806
  Transmission Date: 20120928
  Serious: Yes (Other)
  Sender: FDA-Public Use
  Company Number: US-JNJFOC-20120712744

PATIENT
  Age: 9 Year
  Sex: Male
  Weight: 34.02 kg

DRUGS (8)
  1. EPIPEN [Concomitant]
     Indication: FOOD ALLERGY
     Dosage: AS NEEDED SINCE YEARS
     Route: 065
  2. ZYRTEC [Suspect]
     Indication: MULTIPLE ALLERGIES
     Dosage: HALF TABLET ONCE AT NIGHT
     Route: 048
     Dates: end: 20110816
  3. PULMICORT [Concomitant]
     Indication: ASTHMA
     Dosage: OVER 1 YEAR
     Route: 065
  4. NASONEX [Concomitant]
     Indication: MULTIPLE ALLERGIES
     Dosage: AS NEEDED SINCE SEVERAL YEARS
     Route: 065
  5. AN UNKNOWN MEDICATION [Concomitant]
     Indication: FOOD ALLERGY
     Dosage: AS NEEDED SINCE YEARS
     Route: 065
  6. ZYRTEC [Suspect]
     Indication: SEASONAL ALLERGY
     Dosage: HALF TABLET ONCE AT NIGHT
     Route: 048
     Dates: end: 20110816
  7. CHILDREN BENADRYL [Concomitant]
     Indication: FOOD ALLERGY
     Route: 065
  8. ZYRTEC [Suspect]
     Indication: ECZEMA
     Dosage: HALF TABLET ONCE AT NIGHT
     Route: 048
     Dates: end: 20110816

REACTIONS (2)
  - PHOTOPSIA [None]
  - OFF LABEL USE [None]
